FAERS Safety Report 5696692-X (Version None)
Quarter: 2008Q2

REPORT INFORMATION
  Report Type: 
  Country: None (occurrence: None)
  Receive Date: 20080408
  Receipt Date: 20061002
  Transmission Date: 20081010
  Serious: Yes (Other)
  Sender: FDA-Public Use
  Company Number: US-BAYER-US-2006-028252

PATIENT
  Age: 28 Year
  Sex: Female

DRUGS (3)
  1. YASMIN [Suspect]
     Indication: ORAL CONTRACEPTION
     Route: 048
  2. ISOTRETINOIN [Suspect]
     Indication: ACNE
     Dosage: UNIT DOSE: 40 MG
     Route: 048
     Dates: start: 20060601, end: 20060810
  3. ISOTRETINOIN [Suspect]
     Dosage: UNIT DOSE: 80 MG
     Route: 048
     Dates: start: 20060601, end: 20060810

REACTIONS (4)
  - BACK PAIN [None]
  - EPISTAXIS [None]
  - MUSCLE SPASMS [None]
  - PULMONARY EMBOLISM [None]
